FAERS Safety Report 8332032-5 (Version None)
Quarter: 2012Q2

REPORT INFORMATION
  Report Type: 
  Country: None (occurrence: None)
  Receive Date: 20120502
  Receipt Date: 20120426
  Transmission Date: 20120825
  Serious: Yes (Hospitalization)
  Sender: FDA-Public Use
  Company Number: US-AMGEN-USASP2011051911

PATIENT
  Age: 62 Year
  Sex: Male

DRUGS (2)
  1. ENBREL [Suspect]
     Indication: RHEUMATOID ARTHRITIS
     Dosage: 50 MG, QWK
     Dates: start: 20041111
  2. PERCOCET [Concomitant]
     Dosage: UNK

REACTIONS (8)
  - ARTHRALGIA [None]
  - INJECTION SITE PAIN [None]
  - HYPERSENSITIVITY [None]
  - INJECTION SITE MASS [None]
  - INJECTION SITE DISCOMFORT [None]
  - LUNG CARCINOMA CELL TYPE UNSPECIFIED STAGE I [None]
  - PAIN [None]
  - VOMITING [None]
